FAERS Safety Report 21898441 (Version 1)
Quarter: 2023Q1

REPORT INFORMATION
  Report Type: Spontaneous
  Country: GB (occurrence: GB)
  Receive Date: 20230123
  Receipt Date: 20230123
  Transmission Date: 20230417
  Serious: Yes (Other)
  Sender: FDA-Public Use
  Company Number: GB-MHRA-MED-202301161921261340-HLBPG

PATIENT
  Age: 21 Year
  Sex: Male
  Weight: 63 kg

DRUGS (1)
  1. METHYLPHENIDATE [Suspect]
     Active Substance: METHYLPHENIDATE
     Indication: Attention deficit hyperactivity disorder
     Dosage: 5 MILLIGRAM, BID (5MG TWICE A DAY)
     Route: 065
     Dates: start: 20230111, end: 20230112

REACTIONS (5)
  - Visual snow syndrome [Not Recovered/Not Resolved]
  - Disturbance in attention [Not Recovered/Not Resolved]
  - Balance disorder [Not Recovered/Not Resolved]
  - Dissociation [Not Recovered/Not Resolved]
  - Anxiety disorder [Not Recovered/Not Resolved]

NARRATIVE: CASE EVENT DATE: 20230112
